FAERS Safety Report 24904157 (Version 1)
Quarter: 2025Q1

REPORT INFORMATION
  Report Type: Spontaneous
  Country: US (occurrence: US)
  Receive Date: 20250130
  Receipt Date: 20250130
  Transmission Date: 20250409
  Serious: Yes (Congenital Anomaly)
  Sender: ACCORD
  Company Number: US-Accord-466231

PATIENT
  Sex: Male

DRUGS (6)
  1. FLUOROURACIL [Suspect]
     Active Substance: FLUOROURACIL
     Route: 064
  2. OXALIPLATIN [Suspect]
     Active Substance: OXALIPLATIN
     Route: 064
  3. PACLITAXEL [Suspect]
     Active Substance: PACLITAXEL
     Route: 064
  4. LEUCOVORIN [Suspect]
     Active Substance: LEUCOVORIN\LEUCOVORIN CALCIUM
     Route: 064
  5. DEXAMETHASONE [Suspect]
     Active Substance: DEXAMETHASONE
     Route: 064
  6. MAGNESIUM SULFATE [Suspect]
     Active Substance: MAGNESIUM SULFATE
     Route: 064

REACTIONS (2)
  - Small for dates baby [Unknown]
  - Foetal exposure during pregnancy [Unknown]
